FAERS Safety Report 17139344 (Version 1)
Quarter: 2019Q4

REPORT INFORMATION
  Report Type: Report from Study
  Country: DE (occurrence: DE)
  Receive Date: 20191211
  Receipt Date: 20191211
  Transmission Date: 20200122
  Serious: Yes (Hospitalization, Other)
  Sender: FDA-Public Use
  Company Number: DE-TEVA-2019-DE-1148703

PATIENT
  Age: 50 Year
  Sex: Female
  Weight: 84 kg

DRUGS (15)
  1. TOCILIZUMAB. [Suspect]
     Active Substance: TOCILIZUMAB
     Dosage: 162 MG PER 14 DAYS
     Route: 058
  2. VIGANTOLETTEN [Concomitant]
     Active Substance: CHOLECALCIFEROL
  3. TORASEMIDE [Concomitant]
     Active Substance: TORSEMIDE
  4. DOXYCYCLIN [DOXYCYCLINE] [Suspect]
     Active Substance: DOXYCYCLINE
     Indication: DERMATITIS
     Route: 065
  5. TOCILIZUMAB. [Suspect]
     Active Substance: TOCILIZUMAB
     Dosage: 162 MG PER 1 WEEK
     Route: 058
     Dates: start: 20150619, end: 20190614
  6. LEVODOPA [Concomitant]
     Active Substance: LEVODOPA
     Dosage: 25 MG IN THE EVENING, 50 MG AT NIGHT
     Route: 065
  7. LEVODOPA [Concomitant]
     Active Substance: LEVODOPA
     Dosage: 1 DF; 1 EVENING, 2 AT NIGHT
     Route: 065
  8. PREGABALIN. [Concomitant]
     Active Substance: PREGABALIN
     Dosage: 150 MG
     Route: 065
  9. OMEP [Concomitant]
     Active Substance: OMEPRAZOLE
     Dosage: 20 MG
     Route: 065
  10. TOCILIZUMAB. [Suspect]
     Active Substance: TOCILIZUMAB
     Indication: RHEUMATOID ARTHRITIS
     Dosage: 162 MG PER 7 DAYS
     Route: 058
     Dates: start: 20171110
  11. METOPROLOL. [Concomitant]
     Active Substance: METOPROLOL
     Dosage: 47.5 MG
     Route: 065
  12. CORTISONE [Concomitant]
     Active Substance: CORTISONE
     Indication: RHEUMATOID ARTHRITIS
     Dosage: 2 MG
     Route: 065
  13. FOLIC ACID. [Concomitant]
     Active Substance: FOLIC ACID
  14. DOXYCYCLIN [DOXYCYCLINE] [Suspect]
     Active Substance: DOXYCYCLINE
     Indication: BIRTH MARK
     Route: 065
  15. CORTISONE [Concomitant]
     Active Substance: CORTISONE
     Dosage: 6 MG
     Route: 065

REACTIONS (19)
  - Dyspnoea [Unknown]
  - Vitamin D deficiency [Unknown]
  - Bronchitis [Unknown]
  - Rib fracture [Unknown]
  - Inappropriate schedule of product administration [Unknown]
  - Cough [Unknown]
  - Wound haemorrhage [Unknown]
  - Polyneuropathy [Recovering/Resolving]
  - Dermatitis [Recovered/Resolved]
  - Contusion [Not Recovered/Not Resolved]
  - Tooth disorder [Unknown]
  - Fluid retention [Recovered/Resolved]
  - Impaired healing [Recovered/Resolved]
  - Musculoskeletal stiffness [Unknown]
  - Rheumatoid lung [Unknown]
  - Weight decreased [Recovering/Resolving]
  - Rheumatoid arthritis [Recovered/Resolved]
  - Pain [Unknown]
  - Vomiting [Recovered/Resolved]

NARRATIVE: CASE EVENT DATE: 20150619
